FAERS Safety Report 5199094-8 (Version None)
Quarter: 2006Q4

REPORT INFORMATION
  Report Type: 
  Country: None (occurrence: None)
  Receive Date: 20060919
  Receipt Date: 20060620
  Transmission Date: 20070319
  Serious: Yes (Other)
  Sender: FDA-Public Use
  Company Number: HQWYE361623JUN06

PATIENT
  Age: 78 Year
  Sex: Female
  Weight: 52.21 kg

DRUGS (4)
  1. ADVIL [Suspect]
     Indication: PAIN
     Dosage: 1 TO 2 LIQUI-GELS AS NEEDED, ORAL/ COUPLE OF YEARS AGO
     Route: 048
  2. LIPITOR [Concomitant]
  3. UNSPECIFIED ANTIHYPERTENSIVE AGENT (UNSPECIFIED ANTIHYPERTENSIVE AGENT [Concomitant]
  4. FOSAMAX [Concomitant]

REACTIONS (2)
  - INSOMNIA [None]
  - RASH PAPULAR [None]
